FAERS Safety Report 8480354-X (Version None)
Quarter: 2012Q3

REPORT INFORMATION
  Report Type: 
  Country: None (occurrence: None)
  Receive Date: 20120701
  Receipt Date: 20120619
  Transmission Date: 20120928
  Serious: Yes (Hospitalization)
  Sender: FDA-Public Use
  Company Number: HU-ELI_LILLY_AND_COMPANY-HU201206001854

PATIENT
  Age: 26 Year
  Sex: Male

DRUGS (2)
  1. OLANZAPINE [Suspect]
     Indication: SCHIZOPHRENIA
     Dosage: 300 MG, MONTHLY (1/M)
     Route: 030
     Dates: start: 20120301
  2. OLANZAPINE [Concomitant]
     Dosage: 10 MG, EACH EVENING
     Dates: start: 20120531

REACTIONS (4)
  - DRUG ABUSE [None]
  - SOMNOLENCE [None]
  - AGITATION [None]
  - MYALGIA [None]
